FAERS Safety Report 5610644-7 (Version None)
Quarter: 2008Q1

REPORT INFORMATION
  Report Type: 
  Country: None (occurrence: None)
  Receive Date: 20080201
  Receipt Date: 20071026
  Transmission Date: 20080703
  Serious: No
  Sender: FDA-Public Use
  Company Number: US-BAYER-US-2007-040902

PATIENT
  Age: 26 Year
  Sex: Female
  Weight: 54 kg

DRUGS (1)
  1. MIRENA [Suspect]
     Indication: CONTRACEPTION
     Route: 015
     Dates: start: 20070305, end: 20071021

REACTIONS (6)
  - ABDOMINAL PAIN [None]
  - BACK PAIN [None]
  - DYSMENORRHOEA [None]
  - MENORRHAGIA [None]
  - POLYMENORRHOEA [None]
  - VAGINAL HAEMORRHAGE [None]
